FAERS Safety Report 9453240 (Version 1)
Quarter: 2013Q3

REPORT INFORMATION
  Report Type: Spontaneous
  Country: US (occurrence: None)
  Receive Date: 20130809
  Receipt Date: 20130809
  Transmission Date: 20140515
  Serious: Yes (Death)
  Sender: FDA-Public Use
  Company Number: None

PATIENT
  Age: 56 Year
  Sex: Male

DRUGS (2)
  1. CIMZIA [Suspect]
     Indication: RHEUMATOID ARTHRITIS
     Dosage: 200MG QOW SQ
     Route: 058
     Dates: start: 20101120
  2. TIKOSYN [Suspect]
     Indication: CARDIAC DISORDER
     Dosage: 500MG BID PO
     Route: 048

REACTIONS (1)
  - Myocardial infarction [None]
